FAERS Safety Report 20962688 (Version 2)
Quarter: 2022Q3

REPORT INFORMATION
  Report Type: Spontaneous
  Country: US (occurrence: US)
  Receive Date: 20220615
  Receipt Date: 20220706
  Transmission Date: 20221027
  Serious: No
  Sender: FDA-Public Use
  Company Number: US-PFIZER INC-202200835580

PATIENT
  Age: 60 Year
  Sex: Female
  Weight: 81.633 kg

DRUGS (1)
  1. PAXLOVID [Suspect]
     Active Substance: NIRMATRELVIR\RITONAVIR
     Indication: COVID-19 treatment
     Dosage: UNK, 2X/DAY
     Dates: start: 20220606, end: 20220611

REACTIONS (5)
  - Gastrointestinal pain [Recovered/Resolved]
  - Flatulence [Recovered/Resolved]
  - Pain [Recovered/Resolved]
  - Dehydration [Recovered/Resolved]
  - Eructation [Recovered/Resolved]

NARRATIVE: CASE EVENT DATE: 20220601
